FAERS Safety Report 22385059 (Version 1)
Quarter: 2023Q2

REPORT INFORMATION
  Report Type: Spontaneous
  Country: US (occurrence: None)
  Receive Date: 20230527
  Receipt Date: 20230527
  Transmission Date: 20230721
  Serious: No
  Sender: FDA-Public Use
  Company Number: None

PATIENT
  Sex: Female
  Weight: 52.62 kg

DRUGS (5)
  1. IBRANCE [Suspect]
     Active Substance: PALBOCICLIB
     Indication: Breast cancer female
     Dosage: FREQUENCY : DAILY;?OTHER ROUTE : OR 21 DAYS ON 7 D OFF;?
     Route: 050
  2. GABAPENTIN [Concomitant]
     Active Substance: GABAPENTIN
  3. LIDOCAINE [Concomitant]
  4. MORPHINE [Concomitant]
     Active Substance: MORPHINE
  5. OXYCODONE [Concomitant]
     Active Substance: OXYCODONE

REACTIONS (1)
  - Metastases to breast [None]
